FAERS Safety Report 21707304 (Version 11)
Quarter: 2023Q1

REPORT INFORMATION
  Report Type: Report from Study
  Country: CL (occurrence: None)
  Receive Date: 20221209
  Receipt Date: 20230322
  Transmission Date: 20230418
  Serious: Yes (Hospitalization)
  Sender: FDA-Public Use
  Company Number: CL-Eisai Medical Research-EC-2022-129518

PATIENT
  Age: 76 Year
  Sex: Male
  Weight: 65 kg

DRUGS (14)
  1. LENVATINIB [Suspect]
     Active Substance: LENVATINIB
     Indication: Clear cell renal cell carcinoma
     Dosage: FLUCTUATED DOSE, STARTING WITH 20 MG
     Route: 048
     Dates: start: 20220923, end: 20221129
  2. LENVATINIB [Suspect]
     Active Substance: LENVATINIB
     Route: 048
     Dates: start: 20230126
  3. QUAVONLIMAB [Suspect]
     Active Substance: QUAVONLIMAB
     Indication: Clear cell renal cell carcinoma
     Dosage: MK-1308 25MG + PEMBROLIZUMAB 400MG
     Route: 042
     Dates: start: 20220923, end: 20221111
  4. LOSARTAN [Concomitant]
     Active Substance: LOSARTAN
     Dates: start: 201708
  5. METFORMIN [Concomitant]
     Active Substance: METFORMIN HYDROCHLORIDE
     Dates: start: 199804
  6. INSULIN NOS [Concomitant]
     Active Substance: INSULIN NOS
     Route: 058
     Dates: start: 201805
  7. APIXABAN [Concomitant]
     Active Substance: APIXABAN
     Dates: start: 20221017, end: 20221203
  8. SULFAMETHOXAZOLE AND TRIMETHOPRIM [Concomitant]
     Active Substance: SULFAMETHOXAZOLE\TRIMETHOPRIM
     Dates: start: 20221017
  9. ATENOLOL [Concomitant]
     Active Substance: ATENOLOL
     Dates: start: 20221017, end: 20221116
  10. QUETIAPINE FUMARATE [Concomitant]
     Active Substance: QUETIAPINE FUMARATE
     Dates: start: 20221017
  11. CLONAZEPAM [Concomitant]
     Active Substance: CLONAZEPAM
     Dates: start: 20221025, end: 20221223
  12. PREDNISONE [Concomitant]
     Active Substance: PREDNISONE
     Dates: start: 20221103, end: 20221207
  13. ACETAMINOPHEN [Concomitant]
     Active Substance: ACETAMINOPHEN
     Dates: start: 20221103, end: 20221129
  14. PEMBROLIZUMAB [Suspect]
     Active Substance: PEMBROLIZUMAB

REACTIONS (1)
  - Hyponatraemia [Recovered/Resolved]

NARRATIVE: CASE EVENT DATE: 20221130
